FAERS Safety Report 25739128 (Version 1)
Quarter: 2025Q3

REPORT INFORMATION
  Report Type: Spontaneous
  Country: RU (occurrence: RU)
  Receive Date: 20250829
  Receipt Date: 20250829
  Transmission Date: 20251021
  Serious: Yes (Hospitalization, Other)
  Sender: ROCHE
  Company Number: RU-ROCHE-10000368564

PATIENT
  Sex: Female

DRUGS (6)
  1. TRASTUZUMAB [Suspect]
     Active Substance: TRASTUZUMAB
     Indication: Breast cancer in situ
     Route: 065
     Dates: start: 202101
  2. PERTUZUMAB [Suspect]
     Active Substance: PERTUZUMAB
     Indication: Breast cancer in situ
     Route: 065
     Dates: start: 202101
  3. ADO-TRASTUZUMAB EMTANSINE [Suspect]
     Active Substance: ADO-TRASTUZUMAB EMTANSINE
     Indication: Breast cancer in situ
     Route: 042
     Dates: start: 202308
  4. ADO-TRASTUZUMAB EMTANSINE [Suspect]
     Active Substance: ADO-TRASTUZUMAB EMTANSINE
     Route: 042
     Dates: start: 20240718
  5. ADO-TRASTUZUMAB EMTANSINE [Suspect]
     Active Substance: ADO-TRASTUZUMAB EMTANSINE
     Route: 042
     Dates: start: 20240814
  6. DOCETAXEL [Suspect]
     Active Substance: DOCETAXEL
     Indication: Breast cancer in situ
     Route: 065
     Dates: start: 202101

REACTIONS (12)
  - Metastases to central nervous system [Unknown]
  - Thrombocytopenia [Unknown]
  - Metastases to central nervous system [Unknown]
  - Choroid fissure cyst [Unknown]
  - Cerebral microangiopathy [Unknown]
  - Diastolic dysfunction [Unknown]
  - Metastases to bone [Unknown]
  - Bone lesion [Unknown]
  - Bone disorder [Unknown]
  - Cervical cyst [Unknown]
  - Splenomegaly [Unknown]
  - Spinal disorder [Unknown]
